FAERS Safety Report 11359494 (Version 5)
Quarter: 2015Q4

REPORT INFORMATION
  Report Type: Spontaneous
  Country: GB (occurrence: GB)
  Receive Date: 20150807
  Receipt Date: 20151224
  Transmission Date: 20160304
  Serious: Yes (Hospitalization, Other)
  Sender: FDA-Public Use
  Company Number: PHHY2015GB091316

PATIENT

DRUGS (12)
  1. TRASTUZUMAB [Suspect]
     Active Substance: TRASTUZUMAB
     Indication: PRODUCT USED FOR UNKNOWN INDICATION
     Dosage: UNK
     Route: 058
  2. TRASTUZUMAB [Suspect]
     Active Substance: TRASTUZUMAB
     Dosage: CYCLE 2
     Route: 058
  3. PERTUZUMAB [Suspect]
     Active Substance: PERTUZUMAB
     Dosage: UNK
     Route: 065
  4. PERTUZUMAB [Suspect]
     Active Substance: PERTUZUMAB
     Route: 065
  5. DOCETAXEL. [Suspect]
     Active Substance: DOCETAXEL
     Route: 065
  6. NEULASTA [Suspect]
     Active Substance: PEGFILGRASTIM
     Dosage: UNK
     Route: 065
     Dates: start: 20150730
  7. DOCETAXEL. [Suspect]
     Active Substance: DOCETAXEL
     Route: 065
  8. DOCETAXEL. [Suspect]
     Active Substance: DOCETAXEL
     Route: 065
  9. PERTUZUMAB [Suspect]
     Active Substance: PERTUZUMAB
     Indication: PRODUCT USED FOR UNKNOWN INDICATION
     Route: 065
  10. HERCEPTIN [Suspect]
     Active Substance: TRASTUZUMAB
     Indication: PRODUCT USED FOR UNKNOWN INDICATION
     Route: 065
  11. NEULASTA [Suspect]
     Active Substance: PEGFILGRASTIM
     Indication: PRODUCT USED FOR UNKNOWN INDICATION
     Route: 065
     Dates: start: 20150730
  12. DOCETAXEL. [Suspect]
     Active Substance: DOCETAXEL
     Indication: PRODUCT USED FOR UNKNOWN INDICATION
     Route: 065

REACTIONS (36)
  - Vaginal prolapse [Unknown]
  - Hypoaesthesia [Unknown]
  - Insomnia [Unknown]
  - Constipation [Not Recovered/Not Resolved]
  - Feeling abnormal [Unknown]
  - Glossodynia [Unknown]
  - Hypophagia [Unknown]
  - Productive cough [Recovered/Resolved]
  - Sensory disturbance [Unknown]
  - Anxiety [Unknown]
  - Irritable bowel syndrome [Unknown]
  - Pollakiuria [Recovered/Resolved]
  - Alopecia [Unknown]
  - Oral pain [Unknown]
  - Decreased appetite [Unknown]
  - Paraesthesia [Unknown]
  - Musculoskeletal discomfort [Unknown]
  - Device dislocation [Unknown]
  - Dysgeusia [Unknown]
  - Mastectomy [Unknown]
  - Asthenia [Unknown]
  - Ulcer [Unknown]
  - Nausea [Recovered/Resolved]
  - Fatigue [Unknown]
  - Tongue coated [Unknown]
  - Breast mass [Unknown]
  - Micturition urgency [Not Recovered/Not Resolved]
  - Chest discomfort [Unknown]
  - Lethargy [Unknown]
  - Vascular fragility [Unknown]
  - Bone pain [Unknown]
  - Gingival pain [Unknown]
  - Oral candidiasis [Unknown]
  - Urinary tract infection [Unknown]
  - Lower respiratory tract infection [Unknown]
  - Diarrhoea [Unknown]

NARRATIVE: CASE EVENT DATE: 20150730
